FAERS Safety Report 5920439-2 (Version None)
Quarter: 2008Q4

REPORT INFORMATION
  Report Type: 
  Country: None (occurrence: None)
  Receive Date: 20081016
  Receipt Date: 20081006
  Transmission Date: 20090506
  Serious: Yes (Hospitalization)
  Sender: FDA-Public Use
  Company Number: GB-ELI_LILLY_AND_COMPANY-GB200810001785

PATIENT
  Age: 79 Year
  Sex: Female
  Weight: 81 kg

DRUGS (3)
  1. CEFACLOR [Suspect]
     Indication: LOWER RESPIRATORY TRACT INFECTION
     Dosage: 375 MG, UNKNOWN
     Route: 048
     Dates: start: 20080818, end: 20080822
  2. ASPIRIN [Concomitant]
     Indication: CEREBROVASCULAR ACCIDENT
     Dosage: 75 MG, UNKNOWN
     Route: 048
     Dates: start: 20070213
  3. SIMVASTATIN [Concomitant]
     Indication: HYPERCHOLESTEROLAEMIA
     Dosage: 20 MG, UNKNOWN
     Route: 048
     Dates: start: 20070213

REACTIONS (1)
  - DERMATITIS EXFOLIATIVE [None]
